FAERS Safety Report 8138811-1 (Version None)
Quarter: 2012Q1

REPORT INFORMATION
  Report Type: 
  Country: None (occurrence: None)
  Receive Date: 20120215
  Receipt Date: 20120208
  Transmission Date: 20120608
  Serious: Yes (Other)
  Sender: FDA-Public Use
  Company Number: JP-PFIZER INC-2012035248

PATIENT
  Age: 74 Year
  Sex: Male

DRUGS (1)
  1. EPIRUBICIN HYDROCHLORIDE [Suspect]
     Indication: HEPATIC NEOPLASM MALIGNANT
     Dosage: 20 MG, UNK
     Route: 042
     Dates: start: 20111101

REACTIONS (2)
  - LIVER ABSCESS [None]
  - DISSEMINATED INTRAVASCULAR COAGULATION [None]
